FAERS Safety Report 23486978 (Version 1)
Quarter: 2024Q1

REPORT INFORMATION
  Report Type: Spontaneous
  Country: US (occurrence: US)
  Receive Date: 20240206
  Receipt Date: 20240206
  Transmission Date: 20240410
  Serious: Yes (Hospitalization)
  Sender: FDA-Public Use
  Company Number: US-SANDOZ-SDZ2024US011519

PATIENT
  Sex: Female
  Weight: 78.2 kg

DRUGS (2)
  1. ANASTROZOLE [Suspect]
     Active Substance: ANASTROZOLE
     Indication: Product used for unknown indication
     Dosage: 1 MG
     Route: 065
     Dates: start: 20230805, end: 20231121
  2. RIBOCICLIB [Suspect]
     Active Substance: RIBOCICLIB
     Indication: Product used for unknown indication
     Dosage: 600 MG
     Route: 065
     Dates: start: 20230805, end: 20231121

REACTIONS (2)
  - Mastitis [Recovered/Resolved]
  - Post procedural complication [Unknown]

NARRATIVE: CASE EVENT DATE: 20231127
